FAERS Safety Report 5026454-8 (Version None)
Quarter: 2006Q2

REPORT INFORMATION
  Report Type: 
  Country: None (occurrence: None)
  Receive Date: 20060613
  Receipt Date: 20060613
  Transmission Date: 20061013
  Serious: Yes (Disabling)
  Sender: FDA-Public Use
  Company Number: None

PATIENT
  Sex: Male
  Weight: 80.7403 kg

DRUGS (6)
  1. UNASYN [Suspect]
     Indication: OSTEOMYELITIS
     Dosage: TWO GRAMS   EVERY SIX HOURS   IV
     Route: 042
     Dates: start: 20060523, end: 20060524
  2. NPH INSULIN [Concomitant]
  3. METOPROLOL TARTRATE [Concomitant]
  4. VANCOMYCIN [Concomitant]
  5. FUREOSEMIDE [Concomitant]
  6. DIGOXIN [Concomitant]

REACTIONS (1)
  - PYREXIA [None]
